FAERS Safety Report 6089068-7 (Version None)
Quarter: 2009Q1

REPORT INFORMATION
  Report Type: 
  Country: None (occurrence: None)
  Receive Date: 20090224
  Receipt Date: 20090219
  Transmission Date: 20090719
  Serious: Yes (Hospitalization)
  Sender: FDA-Public Use
  Company Number: B0560802A

PATIENT
  Age: 56 Year
  Sex: Female
  Weight: 73.7 kg

DRUGS (2)
  1. LAPATINIB [Suspect]
     Indication: BREAST CANCER
     Dosage: 1500MG PER DAY
     Route: 048
     Dates: start: 20080728
  2. FEMARA [Concomitant]
     Route: 048

REACTIONS (4)
  - INFECTION [None]
  - PYREXIA [None]
  - RENAL IMPAIRMENT [None]
  - STREPTOCOCCAL SEPSIS [None]
